FAERS Safety Report 5618874-5 (Version None)
Quarter: 2008Q1

REPORT INFORMATION
  Report Type: 
  Country: None (occurrence: None)
  Receive Date: 20080207
  Receipt Date: 20080131
  Transmission Date: 20080703
  Serious: Yes (Other)
  Sender: FDA-Public Use
  Company Number: US-PFIZER INC-2007056953

PATIENT
  Sex: Female
  Weight: 81.6 kg

DRUGS (8)
  1. LYRICA [Suspect]
     Indication: ARTHRITIS
     Route: 048
     Dates: start: 20060501, end: 20070501
  2. LYRICA [Suspect]
     Indication: NEUROPATHY PERIPHERAL
  3. LASIX [Concomitant]
     Route: 048
  4. FOSAMAX [Concomitant]
     Route: 048
  5. ULTRACET [Concomitant]
     Route: 048
  6. CELEBREX [Concomitant]
     Route: 048
  7. CELEXA [Concomitant]
     Route: 048
  8. BENTYL [Concomitant]
     Indication: GLAUCOMA

REACTIONS (7)
  - BODY HEIGHT DECREASED [None]
  - DRUG INEFFECTIVE [None]
  - INSOMNIA [None]
  - IRRITABILITY [None]
  - MEMORY IMPAIRMENT [None]
  - WEIGHT INCREASED [None]
  - WITHDRAWAL SYNDROME [None]
